FAERS Safety Report 8561914-4 (Version None)
Quarter: 2012Q3

REPORT INFORMATION
  Report Type: 
  Country: None (occurrence: None)
  Receive Date: 20120802
  Receipt Date: 20120705
  Transmission Date: 20120928
  Serious: No
  Sender: FDA-Public Use
  Company Number: US-AMGEN-USASP2011065182

PATIENT
  Age: 62 Year
  Sex: Female
  Weight: 80.272 kg

DRUGS (7)
  1. COZAAR [Concomitant]
     Dosage: 25 MG, QD
     Route: 048
  2. HYDROCHLOROTHIAZIDE [Concomitant]
     Dosage: 25 MG, QD
     Route: 048
  3. GLYBURIDE AND METFORMIN HYDROCHLORIDE [Concomitant]
     Dosage: 100 MG, QD
     Route: 048
  4. ASPIRIN [Concomitant]
     Dosage: 81 MG, QD
     Route: 048
  5. ENBREL [Suspect]
     Indication: RHEUMATOID ARTHRITIS
     Dosage: 50 MG, QWK
     Route: 058
     Dates: start: 20110101, end: 20111001
  6. METHOTREXATE [Concomitant]
     Dosage: 10 MG, QWK
     Route: 048
  7. FOLIC ACID [Concomitant]
     Dosage: 1 MG, QD
     Route: 048

REACTIONS (8)
  - PAIN IN EXTREMITY [None]
  - ARTHRALGIA [None]
  - UPPER RESPIRATORY TRACT INFECTION [None]
  - FALL [None]
  - COUGH [None]
  - INJECTION SITE PAIN [None]
  - CONTUSION [None]
  - NASOPHARYNGITIS [None]
